FAERS Safety Report 8954528 (Version 1)
Quarter: 2012Q4

REPORT INFORMATION
  Report Type: Spontaneous
  Country: US (occurrence: None)
  Receive Date: 20121205
  Receipt Date: 20121205
  Transmission Date: 20130627
  Serious: Yes (Hospitalization, Other)
  Sender: FDA-Public Use
  Company Number: None

PATIENT
  Age: 24 Year
  Sex: Female
  Weight: 85.28 kg

DRUGS (1)
  1. MIRENA [Suspect]
     Dates: start: 20120206, end: 20121016

REACTIONS (3)
  - Device dislocation [None]
  - Abscess [None]
  - Female sterilisation [None]
